FAERS Safety Report 13477001 (Version 2)
Quarter: 2017Q2

REPORT INFORMATION
  Report Type: Spontaneous
  Country: DE (occurrence: DE)
  Receive Date: 20170425
  Receipt Date: 20170516
  Transmission Date: 20170830
  Serious: Yes (Other)
  Sender: FDA-Public Use
  Company Number: DE-VIIV HEALTHCARE LIMITED-DE2017GSK040915

PATIENT
  Age: 55 Year
  Sex: Female

DRUGS (1)
  1. TIVICAY [Suspect]
     Active Substance: DOLUTEGRAVIR SODIUM
     Indication: PRODUCT USED FOR UNKNOWN INDICATION
     Dosage: 1 UNK, 1D
     Dates: start: 201506, end: 201608

REACTIONS (9)
  - Product use in unapproved indication [Unknown]
  - Insomnia [Recovered/Resolved]
  - Off label use [Unknown]
  - Paraesthesia [Recovering/Resolving]
  - Mental disorder [Unknown]
  - Polyneuropathy [Recovering/Resolving]
  - Depressed mood [Recovered/Resolved]
  - Dizziness [Recovered/Resolved]
  - Neuropathy peripheral [Recovered/Resolved]

NARRATIVE: CASE EVENT DATE: 201508
